FAERS Safety Report 7392947-1 (Version None)
Quarter: 2011Q2

REPORT INFORMATION
  Report Type: 
  Country: None (occurrence: None)
  Receive Date: 20110404
  Receipt Date: 20110330
  Transmission Date: 20111010
  Serious: Yes (Other)
  Sender: FDA-Public Use
  Company Number: VE-PFIZER INC-2011071042

PATIENT
  Age: 77 Year
  Sex: Female

DRUGS (5)
  1. DIOVAN [Concomitant]
     Dosage: UNK
     Route: 048
  2. AMLODIPINE [Concomitant]
     Dosage: 5 MG, 1X/DAY
     Route: 048
  3. LIPITOR [Suspect]
     Indication: HYPERTRIGLYCERIDAEMIA
  4. PLAVIX [Concomitant]
     Dosage: 75 MG, 1X/DAY
     Route: 048
  5. LIPITOR [Suspect]
     Indication: HYPERCHOLESTEROLAEMIA
     Dosage: 40 MG, 1X/DAY
     Route: 048
     Dates: start: 20080101

REACTIONS (1)
  - SHOULDER OPERATION [None]
